FAERS Safety Report 21651420 (Version 1)
Quarter: 2022Q4

REPORT INFORMATION
  Report Type: Spontaneous
  Country: GB (occurrence: GB)
  Receive Date: 20221128
  Receipt Date: 20221128
  Transmission Date: 20230113
  Serious: Yes (Other)
  Sender: FDA-Public Use
  Company Number: GB-MHRA-MED-202210121336266770-BSHMT

PATIENT
  Age: 75 Year
  Sex: Female

DRUGS (2)
  1. TADALAFIL [Suspect]
     Active Substance: TADALAFIL
     Indication: Pulmonary hypertension
     Dosage: 40 MG, DAILY (20 MG 2 PER DAY)
     Route: 065
     Dates: start: 20160401
  2. MACITENTAN [Suspect]
     Active Substance: MACITENTAN
     Indication: Pulmonary hypertension
     Dosage: 10 MG, DAILY
     Route: 065
     Dates: start: 20160401

REACTIONS (4)
  - Cardiac disorder [Unknown]
  - Intentional underdose [Unknown]
  - Dyspnoea [Unknown]
  - Malaise [Unknown]
